FAERS Safety Report 7978437-3 (Version None)
Quarter: 2011Q4

REPORT INFORMATION
  Report Type: 
  Country: None (occurrence: None)
  Receive Date: 20111205
  Receipt Date: 20111124
  Transmission Date: 20120403
  Serious: Yes (Hospitalization)
  Sender: FDA-Public Use
  Company Number: 2011SP055441

PATIENT
  Age: 35 Year
  Sex: Female
  Weight: 42 kg

DRUGS (2)
  1. SUPRECUR [Concomitant]
  2. GANIRELIX (GANIRELIX /01453701/) [Suspect]
     Indication: PRODUCT USED FOR UNKNOWN INDICATION
     Dosage: 0.25 MG;ONCE;SC
     Route: 058
     Dates: start: 20100414, end: 20100414

REACTIONS (3)
  - THREATENED LABOUR [None]
  - FORCEPS DELIVERY [None]
  - MATERNAL EXPOSURE DURING PREGNANCY [None]
